FAERS Safety Report 10042960 (Version 3)
Quarter: 2017Q4

REPORT INFORMATION
  Report Type: Report from Study
  Country: GB (occurrence: GB)
  Receive Date: 20140328
  Receipt Date: 20171128
  Transmission Date: 20180320
  Serious: Yes (Hospitalization, Disabling)
  Sender: FDA-Public Use
  Company Number: GB-ROCHE-1368365

PATIENT
  Age: 77 Year
  Sex: Male
  Weight: 98.4 kg

DRUGS (18)
  1. FUROSEMIDE. [Concomitant]
     Active Substance: FUROSEMIDE
     Indication: HYPERTENSION
     Dosage: EVERYDAY
     Route: 048
     Dates: start: 20080915
  2. VINCRISTINE [Suspect]
     Active Substance: VINCRISTINE
     Indication: B-CELL LYMPHOMA
     Dosage: FREQUENCY AS PER PROTOCOL : DAY 1, REPEATED EVERY 21 DAYS FOR 8 CYCLES.
     Route: 042
     Dates: start: 20120718
  3. CHLORPHENIRAMINE. [Concomitant]
     Active Substance: CHLORPHENIRAMINE
  4. PARACETAMOL [Concomitant]
     Active Substance: ACETAMINOPHEN
  5. CLOPIDOGREL [Concomitant]
     Active Substance: CLOPIDOGREL BISULFATE
     Indication: CARDIAC DISORDER
     Dosage: EVERYDAY
     Route: 048
     Dates: start: 20080915
  6. ATORVASTATIN [Concomitant]
     Active Substance: ATORVASTATIN
     Indication: CARDIAC DISORDER
     Dosage: EVERYDAY
     Route: 048
     Dates: start: 20140318
  7. PYRIDOXINE [Concomitant]
     Active Substance: PYRIDOXINE
     Indication: HYPERTENSION
     Route: 048
     Dates: start: 20140320
  8. GABAPENTIN. [Concomitant]
     Active Substance: GABAPENTIN
     Indication: ANALGESIC THERAPY
     Dosage: EVERYDAY
     Route: 048
     Dates: start: 20140320
  9. PREDNISOLONE. [Suspect]
     Active Substance: PREDNISOLONE
     Indication: B-CELL LYMPHOMA
     Dosage: FREQUENCY AS PER PROTOCOL : DAY 1-5, REPEATED EVERY 21 DAYS FOR 8 CYCLES.
     Route: 048
     Dates: start: 20120718
  10. BISOPROLOL [Concomitant]
     Active Substance: BISOPROLOL
     Indication: HYPERTENSION
     Dosage: EVERYDAY
     Route: 048
     Dates: start: 20140321
  11. RITUXIMAB. [Suspect]
     Active Substance: RITUXIMAB
     Indication: B-CELL LYMPHOMA
     Route: 042
     Dates: start: 20120718
  12. SIMVASTATIN. [Concomitant]
     Active Substance: SIMVASTATIN
     Indication: HYPERCHOLESTEROLAEMIA
     Dosage: EVERYDAY
     Route: 048
     Dates: start: 20080915, end: 20140317
  13. ENOXAPARIN [Concomitant]
     Active Substance: ENOXAPARIN
     Indication: PROPHYLAXIS
     Dosage: EVERYDAY
     Route: 058
     Dates: start: 20140318, end: 20140320
  14. ASPIRIN. [Concomitant]
     Active Substance: ASPIRIN
     Indication: CARDIAC DISORDER
     Dosage: EVERYDAY
     Route: 048
     Dates: start: 200809
  15. LINAGLIPTIN [Concomitant]
     Active Substance: LINAGLIPTIN
     Indication: TYPE 2 DIABETES MELLITUS
     Dosage: EVERYDAY
     Route: 048
     Dates: start: 20140317
  16. CYCLOPHOSPHAMIDE. [Suspect]
     Active Substance: CYCLOPHOSPHAMIDE
     Indication: B-CELL LYMPHOMA
     Dosage: FREQUENCY AS PER PROTOCOL : DAY 1-3, REPEATED EVERY 21 DAYS FOR 8 CYCLES.
     Route: 048
     Dates: start: 20120718
  17. MEROPENEM. [Concomitant]
     Active Substance: MEROPENEM
     Dosage: EVERYDAY
     Route: 042
     Dates: start: 20140317, end: 20140321
  18. RAMIPRIL. [Concomitant]
     Active Substance: RAMIPRIL
     Indication: CARDIAC DISORDER
     Dosage: EVERYDAY
     Route: 048
     Dates: start: 20140321

REACTIONS (2)
  - Sepsis [Recovered/Resolved with Sequelae]
  - Renal failure [Recovered/Resolved with Sequelae]

NARRATIVE: CASE EVENT DATE: 20140314
